FAERS Safety Report 24678917 (Version 1)
Quarter: 2024Q4

REPORT INFORMATION
  Report Type: Spontaneous
  Country: VN (occurrence: VN)
  Receive Date: 20241129
  Receipt Date: 20241129
  Transmission Date: 20250114
  Serious: Yes (Other)
  Sender: JOHNSON AND JOHNSON
  Company Number: VN-JNJFOC-20241154816

PATIENT
  Age: 85 Year
  Sex: Female

DRUGS (3)
  1. DARZALEX [Suspect]
     Active Substance: DARATUMUMAB
     Indication: Plasma cell myeloma
     Dosage: IN CYCLES 1 AND 2, ON DAYS 1, 8, 15,22 IN CYCLES 3 TO 6, ON DAYS 1, 15 FROM CYCLES 7 ONWARDS, ON DAY
     Route: 065
  2. LENALIDOMIDE [Suspect]
     Active Substance: LENALIDOMIDE
     Indication: Plasma cell myeloma
     Dosage: ON DAYS 1 TO 21
  3. DEXAMETHASONE [Suspect]
     Active Substance: DEXAMETHASONE
     Indication: Plasma cell myeloma
     Dosage: ON DAYS  1, 8, 15, 22

REACTIONS (6)
  - Deep vein thrombosis [Unknown]
  - Neutropenia [Unknown]
  - Anaemia [Unknown]
  - Urinary tract infection bacterial [Unknown]
  - Chills [Unknown]
  - Infusion related reaction [Unknown]
